FAERS Safety Report 24731429 (Version 1)
Quarter: 2024Q4

REPORT INFORMATION
  Report Type: Spontaneous
  Country: JP (occurrence: JP)
  Receive Date: 20241213
  Receipt Date: 20241213
  Transmission Date: 20250114
  Serious: Yes (Hospitalization)
  Sender: PFIZER
  Company Number: JP-PFIZER INC-PV202400148497

PATIENT
  Age: 74 Year
  Sex: Female
  Weight: 44 kg

DRUGS (8)
  1. ELREXFIO [Suspect]
     Active Substance: ELRANATAMAB-BCMM
     Dosage: 12 MG, SINGLE (DAY 1)
     Route: 058
     Dates: start: 20240722
  2. ELREXFIO [Suspect]
     Active Substance: ELRANATAMAB-BCMM
     Dosage: 32 MG, SINGLE, (DAY4)
     Route: 058
     Dates: start: 20240725
  3. ELREXFIO [Suspect]
     Active Substance: ELRANATAMAB-BCMM
     Dosage: 76 MG, SINGLE (DAY8)
     Route: 058
     Dates: start: 20240729
  4. VONOPRAZAN FUMARATE [Concomitant]
     Active Substance: VONOPRAZAN FUMARATE
     Dosage: 10 MG, 1X/DAY
  5. FLUCONAZOLE [Concomitant]
     Active Substance: FLUCONAZOLE
     Indication: Infection prophylaxis
     Dosage: 100 MG, 1X/DAY
  6. ACYCLOVIR [Concomitant]
     Active Substance: ACYCLOVIR
     Indication: Infection prophylaxis
     Dosage: 200 MG, 1X/DAY
  7. SULFAMETHOXAZOLE\TRIMETHOPRIM [Concomitant]
     Active Substance: SULFAMETHOXAZOLE\TRIMETHOPRIM
     Indication: Infection prophylaxis
     Dosage: 480 MG, 2X/WEEK
  8. ACETAMINOPHEN [Concomitant]
     Active Substance: ACETAMINOPHEN
     Dosage: 500 MG, 1X/DAY

REACTIONS (1)
  - Cytomegalovirus infection [Unknown]

NARRATIVE: CASE EVENT DATE: 20241001
